FAERS Safety Report 7228979-3 (Version None)
Quarter: 2011Q1

REPORT INFORMATION
  Report Type: 
  Country: None (occurrence: None)
  Receive Date: 20110117
  Receipt Date: 20110111
  Transmission Date: 20110831
  Serious: Yes (Hospitalization)
  Sender: FDA-Public Use
  Company Number: FR-JNJFOC-20101204945

PATIENT
  Sex: Male

DRUGS (15)
  1. PROFENID [Suspect]
     Indication: POST-TRAUMATIC PAIN
     Route: 042
  2. PERFALGAN [Suspect]
     Indication: POST-TRAUMATIC PAIN
     Route: 042
  3. EMTRICITABINE/TENOFOVIR DISOPROXIL FUMARATE [Suspect]
     Route: 048
  4. BACTRIM DS [Concomitant]
     Indication: PNEUMOCYSTIS JIROVECI PNEUMONIA
     Route: 065
  5. DARUNAVIR [Suspect]
     Indication: HIV INFECTION
     Route: 048
  6. EMTRICITABINE/TENOFOVIR DISOPROXIL FUMARATE [Suspect]
     Indication: HIV INFECTION
     Route: 048
  7. ZOPICLONE [Suspect]
     Indication: PRODUCT USED FOR UNKNOWN INDICATION
     Route: 065
  8. SPIRIVA [Concomitant]
     Route: 065
  9. MORPHINE SULFATE [Concomitant]
     Route: 065
  10. ALFUZOSIN HCL [Concomitant]
     Indication: DYSURIA
     Route: 065
  11. INNOVAR [Concomitant]
  12. NORVIR [Suspect]
     Indication: HIV INFECTION
     Route: 048
  13. TOPALGIC [Suspect]
     Indication: POST-TRAUMATIC PAIN
     Dosage: 100 MG/2ML
     Route: 042
  14. PARACETAMOL [Suspect]
     Indication: POST-TRAUMATIC PAIN
     Route: 048
  15. BECLOMETHASONE DIPROPIONATE [Concomitant]
     Route: 065

REACTIONS (2)
  - CHOLESTATIC LIVER INJURY [None]
  - CYTOLYTIC HEPATITIS [None]
